FAERS Safety Report 17781075 (Version 2)
Quarter: 2020Q4

REPORT INFORMATION
  Report Type: Spontaneous
  Country: US (occurrence: US)
  Receive Date: 20200514
  Receipt Date: 20201021
  Transmission Date: 20210113
  Serious: Yes (Hospitalization, Disabling, Other)
  Sender: FDA-Public Use
  Company Number: US-PFIZER INC-2019125222

PATIENT
  Age: 84 Year
  Sex: Female
  Weight: 45.36 kg

DRUGS (3)
  1. FRAGMIN [Suspect]
     Active Substance: DALTEPARIN SODIUM
     Indication: BLOOD DISORDER
     Dosage: UNK
  2. FRAGMIN [Suspect]
     Active Substance: DALTEPARIN SODIUM
     Indication: DEEP VEIN THROMBOSIS
     Dosage: 7500 IU, DAILY (INJECT 7,500 UNITS INTO THE SKIN DAILY)
  3. FRAGMIN [Suspect]
     Active Substance: DALTEPARIN SODIUM
     Indication: FACTOR V LEIDEN MUTATION
     Dosage: UNK, 1X/DAY (75000 BY INJECTION ONCE A DAY)
     Dates: start: 2003

REACTIONS (7)
  - Vomiting [Unknown]
  - Lung neoplasm malignant [Unknown]
  - Uterine cancer [Unknown]
  - Loss of consciousness [Unknown]
  - Orthostatic hypotension [Unknown]
  - Product prescribing error [Unknown]
  - Hypertension [Unknown]

NARRATIVE: CASE EVENT DATE: 2016
